FAERS Safety Report 12654475 (Version 2)
Quarter: 2016Q3

REPORT INFORMATION
  Report Type: Report from Study
  Country: AR (occurrence: AR)
  Receive Date: 20160816
  Receipt Date: 20160829
  Transmission Date: 20161109
  Serious: Yes (Hospitalization, Other)
  Sender: FDA-Public Use
  Company Number: PHHY2016AR111609

PATIENT
  Age: 81 Year
  Sex: Female

DRUGS (4)
  1. BISOPROLOL FUMARATE. [Concomitant]
     Active Substance: BISOPROLOL FUMARATE
     Indication: CARDIAC DISORDER
     Route: 065
  2. SALMETEROL HYDROXYNAPHTHOATE [Concomitant]
     Indication: BRONCHIAL DISORDER
     Route: 065
  3. SEEBRI BREEZHALER [Suspect]
     Active Substance: GLYCOPYRROLATE
     Indication: CHRONIC OBSTRUCTIVE PULMONARY DISEASE
     Dosage: UNK
     Route: 065
     Dates: start: 20160323
  4. AMIODARONE [Concomitant]
     Active Substance: AMIODARONE
     Indication: CARDIAC DISORDER
     Route: 065

REACTIONS (7)
  - Sensitivity to weather change [Unknown]
  - Gait disturbance [Unknown]
  - Fluid retention [Unknown]
  - Choking [Unknown]
  - Disease recurrence [Recovered/Resolved]
  - Memory impairment [Unknown]
  - Cough [Unknown]

NARRATIVE: CASE EVENT DATE: 20160420
